FAERS Safety Report 5293761-3 (Version None)
Quarter: 2007Q2

REPORT INFORMATION
  Report Type: 
  Country: None (occurrence: None)
  Receive Date: 20070411
  Receipt Date: 20070330
  Transmission Date: 20071010
  Serious: Yes (Hospitalization, Other)
  Sender: FDA-Public Use
  Company Number: FR-PFIZER INC-2007007271

PATIENT
  Sex: Female
  Weight: 65 kg

DRUGS (6)
  1. LYRICA [Suspect]
     Indication: NEUROPATHY PERIPHERAL
     Route: 048
  2. AMLODIPINE [Concomitant]
     Indication: HYPERTENSION
     Route: 048
     Dates: start: 20000101, end: 20070213
  3. ACTONEL [Concomitant]
     Indication: OSTEOPOROSIS
     Route: 048
  4. VASTAREL [Concomitant]
     Indication: VERTIGO
     Route: 048
  5. CLONAZEPAM [Concomitant]
     Indication: NEUROPATHY PERIPHERAL
     Route: 048
  6. CELECTOL [Concomitant]
     Indication: HYPERTENSION
     Route: 048
     Dates: start: 20070213

REACTIONS (4)
  - ATRIOVENTRICULAR BLOCK COMPLETE [None]
  - BRONCHITIS [None]
  - CARDIAC FAILURE [None]
  - HEART RATE DECREASED [None]
